FAERS Safety Report 16535438 (Version 2)
Quarter: 2019Q3

REPORT INFORMATION
  Report Type: Report from Study
  Country: US (occurrence: US)
  Receive Date: 20190705
  Receipt Date: 20190930
  Transmission Date: 20191004
  Serious: Yes (Other)
  Sender: FDA-Public Use
  Company Number: US-ROCHE-2343876

PATIENT
  Age: 61 Year
  Sex: Female
  Weight: 76.27 kg

DRUGS (16)
  1. BIOTIN [Concomitant]
     Active Substance: BIOTIN
     Dosage: 30,000 MCG; ONGOING : YES
     Route: 065
  2. OCREVUS [Suspect]
     Active Substance: OCRELIZUMAB
     Indication: RELAPSING-REMITTING MULTIPLE SCLEROSIS
     Dosage: SECOND HALF; ONGOING : YES
     Route: 065
     Dates: start: 201811
  3. SPIRONOLACTONE. [Concomitant]
     Active Substance: SPIRONOLACTONE
     Indication: HYPERTENSION
     Dosage: ONGOING YES
     Route: 065
  4. CALCIUM CARBONATE;COLECALCIFEROL [Concomitant]
     Active Substance: CALCIUM CARBONATE\CHOLECALCIFEROL
     Indication: PRODUCT USED FOR UNKNOWN INDICATION
     Dosage: ONGOING YES
     Route: 065
  5. SPIRIVA [Concomitant]
     Active Substance: TIOTROPIUM BROMIDE MONOHYDRATE
  6. AMANTADINE. [Concomitant]
     Active Substance: AMANTADINE HYDROCHLORIDE
     Indication: PRODUCT USED FOR UNKNOWN INDICATION
     Dosage: ONGOING YES
     Route: 065
  7. AMLODIPINE [Concomitant]
     Active Substance: AMLODIPINE BESYLATE
     Indication: HYPERTENSION
     Dosage: ONGOING YES
     Route: 065
  8. ZINBRYTA [Concomitant]
     Active Substance: DACLIZUMAB
     Route: 065
     Dates: start: 2017
  9. OCREVUS [Suspect]
     Active Substance: OCRELIZUMAB
     Dosage: FULL INFUSION; ONGOING: UNKNOWN
     Route: 065
     Dates: start: 20190420
  10. FLEXERIL [Concomitant]
     Active Substance: CYCLOBENZAPRINE HYDROCHLORIDE
  11. PAXIL [Concomitant]
     Active Substance: PAROXETINE HYDROCHLORIDE
  12. VITAMIN D3 [Concomitant]
     Active Substance: CHOLECALCIFEROL
     Dosage: ONGOING : YES
     Route: 065
  13. TECFIDERA [Concomitant]
     Active Substance: DIMETHYL FUMARATE
     Route: 065
     Dates: start: 2017
  14. OCREVUS [Suspect]
     Active Substance: OCRELIZUMAB
     Indication: MULTIPLE SCLEROSIS
     Dosage: FIRST HALF; ONGOING : YES
     Route: 065
     Dates: start: 201810
  15. FLONASE [Concomitant]
     Active Substance: FLUTICASONE PROPIONATE
  16. COPAXONE [Concomitant]
     Active Substance: GLATIRAMER ACETATE
     Route: 065
     Dates: start: 2011, end: 2016

REACTIONS (9)
  - Pneumothorax [Not Recovered/Not Resolved]
  - Sleep disorder [Not Recovered/Not Resolved]
  - Asthenia [Unknown]
  - Multiple sclerosis relapse [Recovered/Resolved]
  - Influenza [Recovered/Resolved]
  - Pneumonia [Unknown]
  - Lung infection [Not Recovered/Not Resolved]
  - Arthralgia [Not Recovered/Not Resolved]
  - Spinal stenosis [Unknown]

NARRATIVE: CASE EVENT DATE: 201901
